FAERS Safety Report 22230824 (Version 2)
Quarter: 2023Q2

REPORT INFORMATION
  Report Type: Spontaneous
  Country: JP (occurrence: JP)
  Receive Date: 20230420
  Receipt Date: 20230504
  Transmission Date: 20230721
  Serious: Yes (Other)
  Sender: FDA-Public Use
  Company Number: JP-UNITED THERAPEUTICS-UNT-2022-029550

PATIENT
  Age: 6 Year
  Sex: Female

DRUGS (52)
  1. UNITUXIN [Suspect]
     Active Substance: DINUTUXIMAB
     Indication: Neuroblastoma
     Dosage: UNK, CYCLICAL (CYCLE 1)
     Route: 041
     Dates: start: 20221031, end: 20221103
  2. UNITUXIN [Suspect]
     Active Substance: DINUTUXIMAB
     Dosage: UNK, CYCLICAL (CYCLE 2)
     Route: 041
     Dates: start: 20221208, end: 20221211
  3. UNITUXIN [Suspect]
     Active Substance: DINUTUXIMAB
     Dosage: UNK, CYCLICAL (CYCLE 3)
     Route: 041
     Dates: start: 20230110, end: 20230113
  4. UNITUXIN [Suspect]
     Active Substance: DINUTUXIMAB
     Dosage: UNK, CYCLICAL (CYCLE 4)
     Route: 041
     Dates: start: 20230213, end: 20230216
  5. UNITUXIN [Suspect]
     Active Substance: DINUTUXIMAB
     Dosage: 17.5 MG/M2, CYCLICAL (CYCLE 5)
     Route: 041
     Dates: start: 20230313, end: 20230316
  6. UNITUXIN [Suspect]
     Active Substance: DINUTUXIMAB
     Dosage: 17.5 MG/M2, CYCLICAL (CYCLE 6)
     Route: 041
     Dates: start: 20230417, end: 20230420
  7. TECELEUKIN [Suspect]
     Active Substance: TECELEUKIN
     Indication: Neuroblastoma
     Dosage: 162,000 UNITS/M^2
     Route: 065
     Dates: start: 20221128, end: 20221128
  8. TECELEUKIN [Suspect]
     Active Substance: TECELEUKIN
     Dosage: 375,000 UNITS/M^2
     Route: 065
     Dates: start: 20221130, end: 20221201
  9. TECELEUKIN [Suspect]
     Active Substance: TECELEUKIN
     Dosage: 560,000 UNITS/M^2
     Route: 065
     Dates: start: 20221201, end: 20221202
  10. TECELEUKIN [Suspect]
     Active Substance: TECELEUKIN
     Dosage: 750,000 UNITS/M^2
     Route: 065
     Dates: start: 20221202, end: 20221203
  11. TECELEUKIN [Suspect]
     Active Substance: TECELEUKIN
     Dosage: 550,000 UNITS/M^2
     Route: 065
     Dates: start: 20221203, end: 20221204
  12. TECELEUKIN [Suspect]
     Active Substance: TECELEUKIN
     Dosage: 116,000 UNITS/M^2
     Route: 065
     Dates: start: 20221207, end: 20221207
  13. TECELEUKIN [Suspect]
     Active Substance: TECELEUKIN
     Dosage: 500,000 UNITS/M^2
     Route: 065
     Dates: start: 20221208, end: 20221209
  14. TECELEUKIN [Suspect]
     Active Substance: TECELEUKIN
     Dosage: 750,000 UNITS/M^2
     Route: 065
     Dates: start: 20221209, end: 20221210
  15. TECELEUKIN [Suspect]
     Active Substance: TECELEUKIN
     Dosage: 1000,000 UNITS/M^2
     Route: 065
     Dates: start: 20221210, end: 20221212
  16. TECELEUKIN [Suspect]
     Active Substance: TECELEUKIN
     Dosage: 375,000 UNITS/M^2
     Route: 065
     Dates: start: 20230206, end: 20230207
  17. TECELEUKIN [Suspect]
     Active Substance: TECELEUKIN
     Dosage: 560,000 UNITS/M^2
     Route: 065
     Dates: start: 20230207, end: 20230208
  18. TECELEUKIN [Suspect]
     Active Substance: TECELEUKIN
     Dosage: 750,000 UNITS/M^2
     Route: 065
     Dates: start: 20230208, end: 20230210
  19. TECELEUKIN [Suspect]
     Active Substance: TECELEUKIN
     Dosage: 500,000 UNITS/M^2
     Route: 065
     Dates: start: 20230213, end: 20230214
  20. TECELEUKIN [Suspect]
     Active Substance: TECELEUKIN
     Dosage: 750,000 UNITS/M^2
     Route: 065
     Dates: start: 20230214, end: 20230215
  21. TECELEUKIN [Suspect]
     Active Substance: TECELEUKIN
     Dosage: 1000,000 UNITS/M^2
     Route: 065
     Dates: start: 20230215, end: 20230217
  22. TECELEUKIN [Suspect]
     Active Substance: TECELEUKIN
     Dosage: 375,000 UNITS/M^2
     Route: 065
     Dates: start: 20230410, end: 20230411
  23. TECELEUKIN [Suspect]
     Active Substance: TECELEUKIN
     Dosage: 560,000 UNITS/M^2
     Route: 065
     Dates: start: 20230411, end: 20230412
  24. TECELEUKIN [Suspect]
     Active Substance: TECELEUKIN
     Dosage: 750,000 UNITS/M^2
     Route: 065
     Dates: start: 20230412, end: 20230414
  25. TECELEUKIN [Suspect]
     Active Substance: TECELEUKIN
     Dosage: 500,000 UNITS/M^2
     Route: 065
     Dates: start: 20230417, end: 20230418
  26. TECELEUKIN [Suspect]
     Active Substance: TECELEUKIN
     Dosage: 750,000 UNITS/M^2
     Route: 065
     Dates: start: 20230418, end: 20230419
  27. TECELEUKIN [Suspect]
     Active Substance: TECELEUKIN
     Dosage: 1000,000 UNITS/M^2
     Route: 065
     Dates: start: 20230419, end: 20230421
  28. FILGRASTIM [Suspect]
     Active Substance: FILGRASTIM
     Indication: Neuroblastoma
     Dosage: UNK
     Route: 065
     Dates: start: 20221028, end: 20221110
  29. FILGRASTIM [Suspect]
     Active Substance: FILGRASTIM
     Dosage: UNK
     Route: 065
     Dates: start: 20230107, end: 20230120
  30. FILGRASTIM [Suspect]
     Active Substance: FILGRASTIM
     Dosage: 5 MICROGRAM/KILOGRAM/DAY
     Route: 065
     Dates: start: 20230310, end: 20230323
  31. MORPHINE HYDROCHLORIDE [Suspect]
     Active Substance: MORPHINE HYDROCHLORIDE
     Indication: Prophylaxis
     Dosage: UNK
     Route: 065
     Dates: start: 20221031, end: 20221103
  32. MORPHINE HYDROCHLORIDE [Suspect]
     Active Substance: MORPHINE HYDROCHLORIDE
     Dosage: UNK
     Route: 065
     Dates: start: 20221208, end: 20221213
  33. MORPHINE HYDROCHLORIDE [Suspect]
     Active Substance: MORPHINE HYDROCHLORIDE
     Dosage: UNK
     Route: 065
     Dates: start: 20230110, end: 20230116
  34. MORPHINE HYDROCHLORIDE [Suspect]
     Active Substance: MORPHINE HYDROCHLORIDE
     Dosage: UNK
     Route: 065
     Dates: start: 20230213, end: 20230216
  35. MORPHINE HYDROCHLORIDE [Suspect]
     Active Substance: MORPHINE HYDROCHLORIDE
     Dosage: UNK
     Route: 065
     Dates: start: 20230313, end: 20230316
  36. MORPHINE HYDROCHLORIDE [Suspect]
     Active Substance: MORPHINE HYDROCHLORIDE
     Dosage: UNK
     Route: 065
     Dates: start: 20230417, end: 20230421
  37. HYDROXYZINE HYDROCHLORIDE [Concomitant]
     Active Substance: HYDROXYZINE HYDROCHLORIDE
     Indication: Prophylaxis
     Dosage: UNK
     Route: 065
     Dates: start: 20221031, end: 20221103
  38. HYDROXYZINE HYDROCHLORIDE [Concomitant]
     Active Substance: HYDROXYZINE HYDROCHLORIDE
     Indication: Erythema
     Dosage: UNK
     Route: 065
     Dates: start: 20221128, end: 20221212
  39. HYDROXYZINE HYDROCHLORIDE [Concomitant]
     Active Substance: HYDROXYZINE HYDROCHLORIDE
     Dosage: UNK
     Route: 065
     Dates: start: 20230110, end: 20230114
  40. HYDROXYZINE HYDROCHLORIDE [Concomitant]
     Active Substance: HYDROXYZINE HYDROCHLORIDE
     Dosage: UNK
     Route: 065
     Dates: start: 20230206, end: 20230217
  41. HYDROXYZINE HYDROCHLORIDE [Concomitant]
     Active Substance: HYDROXYZINE HYDROCHLORIDE
     Dosage: UNK
     Route: 065
     Dates: start: 20230313, end: 20230317
  42. HYDROXYZINE HYDROCHLORIDE [Concomitant]
     Active Substance: HYDROXYZINE HYDROCHLORIDE
     Dosage: UNK
     Route: 065
     Dates: start: 20230410, end: 20230421
  43. ACETAMINOPHEN [Concomitant]
     Active Substance: ACETAMINOPHEN
     Indication: Prophylaxis
     Dosage: UNK
     Route: 065
     Dates: start: 20221031, end: 20221103
  44. ACETAMINOPHEN [Concomitant]
     Active Substance: ACETAMINOPHEN
     Dosage: UNK
     Route: 065
     Dates: start: 20221128, end: 20221212
  45. ACETAMINOPHEN [Concomitant]
     Active Substance: ACETAMINOPHEN
     Dosage: UNK
     Route: 065
     Dates: start: 20230110, end: 20230114
  46. ACETAMINOPHEN [Concomitant]
     Active Substance: ACETAMINOPHEN
     Dosage: UNK
     Route: 065
     Dates: start: 20230206, end: 20230217
  47. ACETAMINOPHEN [Concomitant]
     Active Substance: ACETAMINOPHEN
     Dosage: UNK
     Route: 065
     Dates: start: 20230313, end: 20230317
  48. ACETAMINOPHEN [Concomitant]
     Active Substance: ACETAMINOPHEN
     Dosage: UNK
     Route: 065
     Dates: start: 20230410, end: 20230421
  49. CEFOZOPRAN [Concomitant]
     Active Substance: CEFOZOPRAN
     Indication: Neuroblastoma
     Dosage: UNK
     Route: 065
     Dates: start: 20221101, end: 20221106
  50. FUROSEMIDE [Concomitant]
     Active Substance: FUROSEMIDE
     Indication: Neuroblastoma
     Dosage: UNK
     Route: 065
     Dates: start: 20221102, end: 20221109
  51. Pentazocin [Concomitant]
     Indication: Neuroblastoma
     Dosage: UNK
     Route: 065
     Dates: start: 20221107, end: 20221108
  52. OLOPATADINE HYDROCHLORIDE [Concomitant]
     Active Substance: OLOPATADINE HYDROCHLORIDE
     Indication: Neuroblastoma
     Dosage: UNK
     Route: 065
     Dates: start: 20221109, end: 20221112

REACTIONS (22)
  - Pulmonary oedema [Recovered/Resolved]
  - Abdominal pain [Recovered/Resolved]
  - Pyrexia [Recovering/Resolving]
  - Rash [Recovered/Resolved]
  - Rash [Recovered/Resolved]
  - Pyrexia [Recovered/Resolved]
  - Abdominal pain [Recovered/Resolved]
  - Hypoalbuminaemia [Recovered/Resolved]
  - Malaise [Recovered/Resolved]
  - Abdominal pain [Recovered/Resolved]
  - Pyrexia [Recovered/Resolved]
  - Malaise [Recovered/Resolved]
  - Pyrexia [Recovered/Resolved]
  - Hypoalbuminaemia [Recovered/Resolved]
  - Abdominal pain [Recovered/Resolved]
  - Constipation [Recovered/Resolved]
  - Abdominal pain [Recovered/Resolved]
  - Pyrexia [Recovered/Resolved]
  - Abdominal pain [Recovered/Resolved]
  - Hypoalbuminaemia [Recovered/Resolved]
  - Constipation [Recovered/Resolved]
  - Malaise [Recovered/Resolved]

NARRATIVE: CASE EVENT DATE: 20221031
